FAERS Safety Report 17209474 (Version 1)
Quarter: 2019Q4

REPORT INFORMATION
  Report Type: Spontaneous
  Country: CA (occurrence: CA)
  Receive Date: 20191227
  Receipt Date: 20191227
  Transmission Date: 20200122
  Serious: Yes (Hospitalization, Other)
  Sender: FDA-Public Use
  Company Number: CA-PFIZER INC-2019554080

PATIENT
  Age: 64 Year
  Sex: Female

DRUGS (9)
  1. DASATINIB. [Suspect]
     Active Substance: DASATINIB
     Indication: CHRONIC MYELOID LEUKAEMIA
     Dosage: UNK
  2. BOSUTINIB [Suspect]
     Active Substance: BOSUTINIB
     Indication: CHRONIC MYELOID LEUKAEMIA
     Dosage: UNK
  3. DASATINIB MONOHYDRATE [Suspect]
     Active Substance: DASATINIB
     Dosage: 60 MG, UNK
  4. NILOTINIB [Suspect]
     Active Substance: NILOTINIB
     Indication: CHRONIC MYELOID LEUKAEMIA
     Dosage: UNK
  5. DASATINIB MONOHYDRATE [Suspect]
     Active Substance: DASATINIB
     Indication: CHRONIC MYELOID LEUKAEMIA
     Dosage: UNK
  6. PONATINIB [Suspect]
     Active Substance: PONATINIB
     Dosage: 15 MG, UNK (1 EVERY 48 HOURS)
  7. BOSUTINIB [Suspect]
     Active Substance: BOSUTINIB
     Dosage: 300 MG, UNK
  8. NILOTINIB [Suspect]
     Active Substance: NILOTINIB
     Dosage: 300 MG, 2X/DAY, (2 EVERY 1 DAYS)
  9. PONATINIB [Suspect]
     Active Substance: PONATINIB
     Indication: CHRONIC MYELOID LEUKAEMIA
     Dosage: 15 MG, 1X/DAY, 1 EVERY 1 DAYS

REACTIONS (7)
  - Dyspnoea [Not Recovered/Not Resolved]
  - Fatigue [Not Recovered/Not Resolved]
  - Cholelithiasis [Not Recovered/Not Resolved]
  - Diarrhoea [Not Recovered/Not Resolved]
  - Pleural effusion [Not Recovered/Not Resolved]
  - Pancreatitis [Not Recovered/Not Resolved]
  - Abdominal pain [Not Recovered/Not Resolved]
